FAERS Safety Report 6520300 (Version 23)
Quarter: 2013Q3

REPORT INFORMATION
  Report Type: Spontaneous
  Country: US (occurrence: US)
  Receive Date: 20080107
  Receipt Date: 20130806
  Transmission Date: 20140515
  Serious: Yes (Death, Hospitalization, Other)
  Sender: FDA-Public Use
  Company Number: PHEH2008US00461

PATIENT
  Age: 66 Year
  Sex: Male
  Weight: 136.6 kg

DRUGS (45)
  1. AREDIA [Suspect]
     Dosage: 90 MG, QMO
     Route: 042
     Dates: start: 20000216, end: 2004
  2. AREDIA [Suspect]
     Dates: start: 2005
  3. AREDIA [Suspect]
     Dates: end: 20051111
  4. ZOMETA [Suspect]
     Indication: PLASMA CELL MYELOMA
     Dosage: 4 MG
     Dates: start: 20030110, end: 20030506
  5. ZOMETA [Suspect]
     Dosage: 4 MG
     Route: 042
     Dates: start: 2004
  6. INH [Concomitant]
  7. PREDNISONE [Concomitant]
  8. FLURAZEPAM [Concomitant]
     Dosage: 30 MG
  9. DAPSONE [Concomitant]
     Dosage: 100 MG
  10. CIPRO ^MILES^ [Concomitant]
     Dosage: 500 MG
  11. ALBUTEROL [Concomitant]
  12. CLOTRIMAZOLE ^POLFA^ [Concomitant]
  13. SEREVENT DISKUS [Concomitant]
  14. FLUZONE [Concomitant]
  15. AMOXICILLIN [Concomitant]
     Dosage: 500 MG
  16. PENICILLIN VK [Concomitant]
  17. ESZOPICLONE [Concomitant]
     Dosage: 2 MG
  18. LOPROX [Concomitant]
  19. MYSOLINE ^ASTRA^ [Concomitant]
  20. RANITIN [Concomitant]
  21. CARBIDOPA W/LEVODOPA [Concomitant]
  22. ACYCLOVIR [Concomitant]
  23. TOBRADEX [Concomitant]
  24. BACITRACIN OPHTHALMIC OINTMENT [Concomitant]
  25. ZANTAC [Concomitant]
     Dosage: 150 MG
  26. SINEMET [Concomitant]
  27. DALMANE [Concomitant]
     Dosage: 40 MG
  28. EPOGEN [Concomitant]
  29. BACTRIM [Concomitant]
  30. FAMVIR                                  /NET/ [Concomitant]
  31. FLUCONAZOLE [Concomitant]
  32. OMEPRAZOLE [Concomitant]
  33. CALTRATE [Concomitant]
  34. VITAMIN D [Concomitant]
  35. ISONIAZID [Concomitant]
  36. LUNESTA [Concomitant]
  37. SELENIUM [Concomitant]
  38. MAGNESIUM [Concomitant]
  39. VITAMIN B6 [Concomitant]
  40. ASA [Concomitant]
  41. SULFAMETHIZOLE [Concomitant]
  42. MULTIVITAMINS [Concomitant]
  43. PRILOSEC [Concomitant]
  44. PROVENTIL [Concomitant]
  45. MORPHINE [Concomitant]

REACTIONS (112)
  - Cardio-respiratory arrest [Fatal]
  - Osteonecrosis of jaw [Unknown]
  - Pain [Unknown]
  - Anxiety [Unknown]
  - Injury [Unknown]
  - Anhedonia [Unknown]
  - Bone disorder [Unknown]
  - Swelling [Unknown]
  - Fistula [Unknown]
  - Denture wearer [Unknown]
  - Anaemia [Unknown]
  - Azotaemia [Unknown]
  - Gingivitis [Unknown]
  - Hepatomegaly [Unknown]
  - Goitre [Unknown]
  - Fatigue [Unknown]
  - Poor personal hygiene [Unknown]
  - Skin lesion [Unknown]
  - Tooth abscess [Unknown]
  - Spinal deformity [Unknown]
  - Cyst [Unknown]
  - Gingival recession [Unknown]
  - Osteitis [Unknown]
  - Infection [Unknown]
  - Bone lesion [Unknown]
  - Dental prosthesis user [Unknown]
  - Large intestine polyp [Unknown]
  - Diverticulitis [Unknown]
  - Neuropathy peripheral [Unknown]
  - Edentulous [Unknown]
  - Tongue disorder [Unknown]
  - Mastication disorder [Unknown]
  - Cellulitis [Unknown]
  - Hypogammaglobulinaemia [Unknown]
  - Osteopenia [Unknown]
  - Impaired healing [Unknown]
  - Wound dehiscence [Unknown]
  - X-ray abnormal [Unknown]
  - Aortic disorder [Unknown]
  - Rib fracture [Unknown]
  - Astigmatism [Unknown]
  - Retinopathy [Unknown]
  - Visual acuity reduced [Unknown]
  - Retinal tear [Unknown]
  - Prostatic specific antigen increased [Unknown]
  - Bone loss [Unknown]
  - Plasmacytosis [Unknown]
  - Intervertebral disc degeneration [Unknown]
  - Osteosclerosis [Unknown]
  - Enchondroma [Unknown]
  - Exostosis [Unknown]
  - Dental caries [Unknown]
  - H1N1 influenza [Unknown]
  - Local swelling [Unknown]
  - Mitral valve incompetence [Unknown]
  - Tricuspid valve incompetence [Unknown]
  - Left ventricular hypertrophy [Unknown]
  - Pulmonary hypertension [Unknown]
  - Epididymal cyst [Unknown]
  - Abdominal hernia [Unknown]
  - Atelectasis [Unknown]
  - Renal cyst [Unknown]
  - Intervertebral disc space narrowing [Unknown]
  - Spinal compression fracture [Unknown]
  - Arthritis [Unknown]
  - Pyelocaliectasis [Unknown]
  - Renal atrophy [Unknown]
  - Bladder mass [Unknown]
  - Arteriosclerosis [Unknown]
  - Aortic calcification [Unknown]
  - Respiratory failure [Unknown]
  - Pneumonia [Unknown]
  - Dyspnoea [Unknown]
  - Diabetes mellitus [Unknown]
  - Deep vein thrombosis [Unknown]
  - Pancytopenia [Unknown]
  - Hypoxia [Unknown]
  - Atrial fibrillation [Unknown]
  - Osteoporosis [Unknown]
  - Mental status changes [Unknown]
  - Dysphagia [Unknown]
  - Hyperlipidaemia [Unknown]
  - Septic shock [Unknown]
  - Thrombocytopenia [Unknown]
  - Sepsis [Unknown]
  - Respiratory distress [Unknown]
  - Cardiomegaly [Unknown]
  - Pleural effusion [Unknown]
  - Arteriosclerosis coronary artery [Unknown]
  - Spinal column stenosis [Unknown]
  - Pneumonitis [Unknown]
  - Kyphosis [Unknown]
  - Osteoarthritis [Unknown]
  - Dysphonia [Unknown]
  - Tachycardia [Unknown]
  - Insomnia [Unknown]
  - Benign prostatic hyperplasia [Unknown]
  - Haemoptysis [Unknown]
  - Pneumothorax [Unknown]
  - Gastrointestinal haemorrhage [Unknown]
  - Embolism venous [Unknown]
  - Lung infiltration [Unknown]
  - Hypercoagulation [Unknown]
  - Essential hypertension [Unknown]
  - Fall [Unknown]
  - Intervertebral disc protrusion [Unknown]
  - Urinary tract infection [Unknown]
  - Glaucoma [Unknown]
  - Spinal osteoarthritis [Unknown]
  - Cerebrovascular accident [Unknown]
  - Tendon calcification [Unknown]
  - Tendonitis [Unknown]
